FAERS Safety Report 4867323-3 (Version None)
Quarter: 2005Q4

REPORT INFORMATION
  Report Type: 
  Country: None (occurrence: None)
  Receive Date: 20051222
  Receipt Date: 20051207
  Transmission Date: 20060501
  Serious: Yes (Other)
  Sender: FDA-Public Use
  Company Number: US200512001299

PATIENT
  Age: 86 Year
  Sex: Male

DRUGS (1)
  1. HUMULIN L [Suspect]
     Dates: start: 19700101

REACTIONS (5)
  - BLOOD GLUCOSE INCREASED [None]
  - GLAUCOMA [None]
  - HIP SURGERY [None]
  - TRIPLE VESSEL BYPASS GRAFT [None]
  - VISUAL ACUITY REDUCED [None]
